FAERS Safety Report 15084524 (Version 3)
Quarter: 2018Q3

REPORT INFORMATION
  Report Type: Spontaneous
  Country: US (occurrence: US)
  Receive Date: 20180628
  Receipt Date: 20180806
  Transmission Date: 20181010
  Serious: Yes (Hospitalization, Other)
  Sender: FDA-Public Use
  Company Number: US-JAZZ-2018-US-010056

PATIENT
  Age: 75 Year
  Sex: Male
  Weight: 106.12 kg

DRUGS (1)
  1. PRIALT [Suspect]
     Active Substance: ZICONOTIDE ACETATE
     Indication: BACK PAIN
     Dosage: 0.001 ?G, QH
     Route: 037
     Dates: start: 20180601, end: 20180712

REACTIONS (6)
  - Cold sweat [Unknown]
  - Skin atrophy [Unknown]
  - White blood cell count increased [Recovered/Resolved]
  - Nephrectomy [Unknown]
  - Staphylococcal infection [Unknown]
  - Wound drainage [Unknown]

NARRATIVE: CASE EVENT DATE: 20180620
